FAERS Safety Report 7740539-4 (Version None)
Quarter: 2011Q3

REPORT INFORMATION
  Report Type: 
  Country: None (occurrence: None)
  Receive Date: 20110909
  Receipt Date: 20110831
  Transmission Date: 20111222
  Serious: Yes (Hospitalization, Other)
  Sender: FDA-Public Use
  Company Number: CH-ABBOTT-11P-151-0851815-00

PATIENT
  Age: 38 Year
  Sex: Female
  Weight: 90 kg

DRUGS (19)
  1. PREZISTA [Suspect]
     Indication: ANTIRETROVIRAL THERAPY
     Route: 048
     Dates: start: 20110528, end: 20110621
  2. DARAPRIM [Concomitant]
     Indication: PRODUCT USED FOR UNKNOWN INDICATION
     Route: 048
     Dates: start: 20110607, end: 20110622
  3. SULFADIAZINUM-HEYL [Concomitant]
     Route: 048
     Dates: start: 20110623
  4. KEPPRA [Concomitant]
     Dosage: 1-0-2-0
     Dates: start: 20110621, end: 20110630
  5. NORVIR [Suspect]
     Indication: ANTIRETROVIRAL THERAPY
     Route: 048
     Dates: start: 20110528, end: 20110621
  6. ISENTRESS [Concomitant]
     Indication: PRODUCT USED FOR UNKNOWN INDICATION
     Route: 048
     Dates: start: 20110621
  7. VALACICLOVIR [Concomitant]
     Indication: PRODUCT USED FOR UNKNOWN INDICATION
     Dosage: 2-0-2-0
     Dates: start: 20110628, end: 20110707
  8. SULFADIAZINUM-HEYL [Concomitant]
     Indication: PRODUCT USED FOR UNKNOWN INDICATION
     Route: 048
     Dates: start: 20110607, end: 20110622
  9. DIFLUCAN [Concomitant]
     Indication: PRODUCT USED FOR UNKNOWN INDICATION
     Route: 041
     Dates: start: 20110621, end: 20110623
  10. KEPPRA [Concomitant]
     Indication: PRODUCT USED FOR UNKNOWN INDICATION
     Route: 048
     Dates: start: 20110701
  11. CALCIUM FOLINAT-EBEWE [Concomitant]
     Indication: PRODUCT USED FOR UNKNOWN INDICATION
     Route: 048
  12. NAVOBAN [Concomitant]
     Indication: PRODUCT USED FOR UNKNOWN INDICATION
     Route: 048
     Dates: start: 20110611
  13. MOTILIUM [Concomitant]
     Indication: PRODUCT USED FOR UNKNOWN INDICATION
  14. RETROVIR [Suspect]
     Indication: ANTIRETROVIRAL THERAPY
     Route: 048
     Dates: start: 20110528, end: 20110621
  15. DARAPRIM [Concomitant]
     Dates: start: 20110623
  16. KEPPRA [Concomitant]
     Dosage: 1-0-1
     Dates: start: 20110516, end: 20110620
  17. TRUVADA [Concomitant]
     Indication: PRODUCT USED FOR UNKNOWN INDICATION
     Route: 048
     Dates: start: 20110528
  18. VALPROIC ACID [Suspect]
     Indication: PRODUCT USED FOR UNKNOWN INDICATION
     Route: 042
     Dates: start: 20110608, end: 20110615
  19. DALTEPARIN SODIUM [Concomitant]
     Indication: PRODUCT USED FOR UNKNOWN INDICATION
     Route: 058

REACTIONS (13)
  - ASPARTATE AMINOTRANSFERASE INCREASED [None]
  - ALANINE AMINOTRANSFERASE INCREASED [None]
  - STATUS EPILEPTICUS [None]
  - GAMMA-GLUTAMYLTRANSFERASE INCREASED [None]
  - LEUKOPENIA [None]
  - LYMPHOPENIA [None]
  - CONFUSIONAL STATE [None]
  - APRAXIA [None]
  - CEREBRAL TOXOPLASMOSIS [None]
  - ERYTHROPENIA [None]
  - VOMITING [None]
  - ANAEMIA [None]
  - APHASIA [None]
